FAERS Safety Report 8382649-7 (Version None)
Quarter: 2012Q2

REPORT INFORMATION
  Report Type: 
  Country: None (occurrence: None)
  Receive Date: 20120524
  Receipt Date: 20120516
  Transmission Date: 20120825
  Serious: Yes (Other)
  Sender: FDA-Public Use
  Company Number: US-US-EMD SERONO, INC.-7133724

PATIENT
  Sex: Female
  Weight: 40 kg

DRUGS (1)
  1. SAIZEN [Suspect]
     Indication: CONGENITAL OSTEODYSTROPHY
     Dates: start: 20100101

REACTIONS (2)
  - EAR OPERATION [None]
  - EAR PAIN [None]
